FAERS Safety Report 15946760 (Version 2)
Quarter: 2019Q4

REPORT INFORMATION
  Report Type: Spontaneous
  Country: US (occurrence: US)
  Receive Date: 20190211
  Receipt Date: 20191108
  Transmission Date: 20200122
  Serious: Yes (Other)
  Sender: FDA-Public Use
  Company Number: US-ASTRAZENECA-2019SE20660

PATIENT
  Age: 66 Year
  Sex: Female
  Weight: 88 kg

DRUGS (32)
  1. NEXIUM [Suspect]
     Active Substance: ESOMEPRAZOLE MAGNESIUM
     Indication: GASTROOESOPHAGEAL REFLUX DISEASE
     Route: 048
     Dates: start: 2000, end: 2016
  2. METFORMIN [Concomitant]
     Active Substance: METFORMIN HYDROCHLORIDE
  3. LUNESTA [Concomitant]
     Active Substance: ESZOPICLONE
  4. ZYPREXA [Concomitant]
     Active Substance: OLANZAPINE
  5. TRICOR [Concomitant]
     Active Substance: FENOFIBRATE
  6. METHYLPREDNISOLONE. [Concomitant]
     Active Substance: METHYLPREDNISOLONE
  7. ATENOLOL. [Concomitant]
     Active Substance: ATENOLOL
  8. ZOSTAVAX [Concomitant]
     Active Substance: VARICELLA-ZOSTER VIRUS STRAIN OKA/MERCK LIVE ANTIGEN
  9. OMEGA 3 OIL [Concomitant]
     Indication: DYSPEPSIA
     Dates: start: 2015
  10. JANUVIA [Concomitant]
     Active Substance: SITAGLIPTIN PHOSPHATE
  11. LANTUS [Concomitant]
     Active Substance: INSULIN GLARGINE
  12. GLIPIZIDE. [Concomitant]
     Active Substance: GLIPIZIDE
  13. AZITHROMYCIN ANHYDROUS. [Concomitant]
     Active Substance: AZITHROMYCIN ANHYDROUS
  14. CLARITHROMYCIN. [Concomitant]
     Active Substance: CLARITHROMYCIN
  15. NEXIUM [Suspect]
     Active Substance: ESOMEPRAZOLE MAGNESIUM
     Indication: GASTROOESOPHAGEAL REFLUX DISEASE
     Route: 048
     Dates: start: 2004, end: 2017
  16. METOCLOPRAMIDE. [Concomitant]
     Active Substance: METOCLOPRAMIDE
  17. OMEPRAZOLE. [Concomitant]
     Active Substance: OMEPRAZOLE
  18. NEXIUM [Suspect]
     Active Substance: ESOMEPRAZOLE MAGNESIUM
     Indication: DYSPEPSIA
     Route: 048
     Dates: start: 2004, end: 2017
  19. NEXIUM [Suspect]
     Active Substance: ESOMEPRAZOLE MAGNESIUM
     Indication: DYSPEPSIA
     Route: 048
     Dates: start: 2000, end: 2016
  20. VENLAFAXINE [Concomitant]
     Active Substance: VENLAFAXINE HYDROCHLORIDE
  21. FUROSEMIDE. [Concomitant]
     Active Substance: FUROSEMIDE
  22. AMOXICILLIN. [Concomitant]
     Active Substance: AMOXICILLIN
     Indication: EAR INFECTION
     Dates: start: 2012
  23. BUSPIRONE [Concomitant]
     Active Substance: BUSPIRONE HYDROCHLORIDE
  24. NOVOLOG [Concomitant]
     Active Substance: INSULIN ASPART
  25. METRONIDAZOLE. [Concomitant]
     Active Substance: METRONIDAZOLE
  26. TURMERIC [Concomitant]
     Active Substance: HERBALS\TURMERIC
     Indication: ARTHRALGIA
     Dates: start: 2014
  27. HYDROCODONE BITARTRATE AND ACETAMINOPHEN [Concomitant]
     Active Substance: ACETAMINOPHEN\HYDROCODONE BITARTRATE
  28. PREDNISONE. [Concomitant]
     Active Substance: PREDNISONE
  29. AMLODIPINE [Concomitant]
     Active Substance: AMLODIPINE BESYLATE
  30. LISINOPRIL. [Concomitant]
     Active Substance: LISINOPRIL
     Indication: HYPERTENSION
     Dates: start: 2014
  31. CEPHALEXIN. [Concomitant]
     Active Substance: CEPHALEXIN
  32. PENICILLIN [Concomitant]
     Active Substance: PENICILLIN
     Indication: URINARY TRACT INFECTION
     Dates: start: 2016

REACTIONS (2)
  - Renal failure [Not Recovered/Not Resolved]
  - Chronic kidney disease [Not Recovered/Not Resolved]

NARRATIVE: CASE EVENT DATE: 2016
